FAERS Safety Report 9998252 (Version 1)
Quarter: 2014Q1

REPORT INFORMATION
  Report Type: Spontaneous
  Country: US (occurrence: US)
  Receive Date: 20140311
  Receipt Date: 20140311
  Transmission Date: 20141002
  Serious: Yes (Life-Threatening, Hospitalization, Other)
  Sender: FDA-Public Use
  Company Number: CHPA2014US003723

PATIENT
  Age: 76 Year
  Sex: Male

DRUGS (2)
  1. VOLTAREN GEL [Suspect]
     Indication: DRUG ADMINISTERED AT INAPPROPRIATE SITE
     Dosage: UNK
     Route: 065
     Dates: start: 2010
  2. VOLTAREN GEL [Suspect]
     Indication: OFF LABEL USE

REACTIONS (7)
  - Hypotension [Recovered/Resolved]
  - Abasia [Not Recovered/Not Resolved]
  - Eye disorder [Not Recovered/Not Resolved]
  - Haemorrhage [Recovered/Resolved]
  - Fall [Not Recovered/Not Resolved]
  - Joint injury [Not Recovered/Not Resolved]
  - Wrong technique in drug usage process [Unknown]
